FAERS Safety Report 25036104 (Version 1)
Quarter: 2025Q1

REPORT INFORMATION
  Report Type: Spontaneous
  Country: US (occurrence: US)
  Receive Date: 20250304
  Receipt Date: 20250304
  Transmission Date: 20250408
  Serious: No
  Sender: Kenvue
  Company Number: US-KENVUE-20250201720

PATIENT

DRUGS (4)
  1. CETIRIZINE HYDROCHLORIDE [Suspect]
     Active Substance: CETIRIZINE HYDROCHLORIDE
     Indication: Allergy to plants
     Route: 065
  2. LEVOCETIRIZINE DIHYDROCHLORIDE [Suspect]
     Active Substance: LEVOCETIRIZINE DIHYDROCHLORIDE
     Indication: Allergy to plants
     Route: 065
  3. ALLEGRA D [FEXOFENADINE HYDROCHLORIDE;PSEUDOEPHEDRINE HYDROCHLORIDE] [Concomitant]
     Indication: Allergy to plants
  4. CLARITIN [Concomitant]
     Active Substance: LORATADINE
     Indication: Allergy to plants

REACTIONS (2)
  - Drug effect less than expected [Unknown]
  - Product use in unapproved indication [Unknown]
